FAERS Safety Report 21982927 (Version 1)
Quarter: 2023Q1

REPORT INFORMATION
  Report Type: Spontaneous
  Country: None (occurrence: US)
  Receive Date: 20230213
  Receipt Date: 20230213
  Transmission Date: 20230418
  Serious: Yes (Life-Threatening, Hospitalization, Other)
  Sender: FDA-Public Use
  Company Number: US-Kindeva Drug Delivery L.P.-2137817

PATIENT
  Sex: Male

DRUGS (2)
  1. ALBUTEROL SULFATE [Suspect]
     Active Substance: ALBUTEROL SULFATE
     Indication: Status asthmaticus
  2. MAGNESIUM SULFATE [Concomitant]
     Active Substance: MAGNESIUM SULFATE

REACTIONS (7)
  - Shock [Unknown]
  - Acute pulmonary oedema [Unknown]
  - Condition aggravated [Unknown]
  - Cor triatriatum [Unknown]
  - Left ventricular end-diastolic pressure decreased [Unknown]
  - Respiratory failure [Unknown]
  - Tachycardia [Unknown]
